FAERS Safety Report 6697048-3 (Version None)
Quarter: 2010Q2

REPORT INFORMATION
  Report Type: 
  Country: None (occurrence: None)
  Receive Date: 20100426
  Receipt Date: 20100414
  Transmission Date: 20101027
  Serious: Yes (Other)
  Sender: FDA-Public Use
  Company Number: PHHY2010US23808

PATIENT
  Sex: Female

DRUGS (4)
  1. ZOMETA [Suspect]
     Dosage: UNK
     Dates: start: 20030101
  2. FEMARA [Concomitant]
  3. OXYCODONE HCL [Concomitant]
     Dosage: 20 MG, UNK
  4. CHLORTHALIDONE [Concomitant]

REACTIONS (3)
  - BONE DEVELOPMENT ABNORMAL [None]
  - FEELING COLD [None]
  - PAIN IN JAW [None]
